FAERS Safety Report 7270519-7 (Version None)
Quarter: 2011Q1

REPORT INFORMATION
  Report Type: 
  Country: None (occurrence: None)
  Receive Date: 20110202
  Receipt Date: 20110126
  Transmission Date: 20110831
  Serious: Yes (Hospitalization, Other)
  Sender: FDA-Public Use
  Company Number: FR-BRISTOL-MYERS SQUIBB COMPANY-15513815

PATIENT
  Age: 40 Year
  Sex: Female

DRUGS (5)
  1. NAVELBINE [Suspect]
     Indication: BREAST CANCER
  2. ENDOXAN [Suspect]
     Indication: BREAST CANCER
     Dates: start: 20100615, end: 20101109
  3. CALCIUM FOLINATE [Suspect]
     Indication: BREAST CANCER
     Route: 042
     Dates: start: 20100615, end: 20101109
  4. TAXOL [Suspect]
     Indication: BREAST CANCER
     Route: 042
     Dates: start: 20101109
  5. FLUOROURACIL [Suspect]
     Indication: BREAST CANCER
     Dates: start: 20100615, end: 20101109

REACTIONS (3)
  - HYPERSENSITIVITY [None]
  - CHILLS [None]
  - PYREXIA [None]
